FAERS Safety Report 5722011-6 (Version None)
Quarter: 2008Q2

REPORT INFORMATION
  Report Type: 
  Country: None (occurrence: None)
  Receive Date: 20080429
  Receipt Date: 20080409
  Transmission Date: 20081010
  Serious: Yes (Other)
  Sender: FDA-Public Use
  Company Number: GB-PFIZER INC-2008031410

PATIENT
  Sex: Male
  Weight: 73 kg

DRUGS (4)
  1. CHAMPIX [Suspect]
     Route: 048
     Dates: start: 20080308, end: 20080317
  2. TIOTROPIUM [Concomitant]
     Route: 048
  3. CROMOLYN SODIUM [Concomitant]
     Route: 061
     Dates: start: 20070802
  4. NICOTINE [Concomitant]
     Route: 062

REACTIONS (2)
  - MICTURITION URGENCY [None]
  - POLLAKIURIA [None]
